FAERS Safety Report 11993302 (Version 1)
Quarter: 2016Q1

REPORT INFORMATION
  Report Type: Spontaneous
  Country: US (occurrence: None)
  Receive Date: 20160202
  Receipt Date: 20160202
  Transmission Date: 20160526
  Serious: No
  Sender: FDA-Public Use
  Company Number: None

PATIENT
  Age: 63 Year
  Sex: Male

DRUGS (1)
  1. HUMIRA [Suspect]
     Active Substance: ADALIMUMAB
     Indication: PRODUCT USED FOR UNKNOWN INDICATION
     Dosage: 40 MG (1 PEN) EVERY 14 DAYS, SQ
     Route: 058
     Dates: start: 20150131, end: 20160118

REACTIONS (1)
  - Recurrent cancer [None]

NARRATIVE: CASE EVENT DATE: 20160118
